FAERS Safety Report 16784875 (Version 1)
Quarter: 2019Q3

REPORT INFORMATION
  Report Type: Spontaneous
  Country: US (occurrence: US)
  Receive Date: 20190717
  Receipt Date: 20190717
  Transmission Date: 20191005
  Serious: No
  Sender: FDA-Public Use
  Company Number: None

PATIENT
  Age: 83 Year
  Sex: Female
  Weight: 60.78 kg

DRUGS (7)
  1. HYDROCODONE BITARTRATE AND ACETAMINOPHEN [Concomitant]
     Active Substance: ACETAMINOPHEN\HYDROCODONE BITARTRATE
  2. VOLTAREN [Suspect]
     Active Substance: DICLOFENAC SODIUM
     Indication: NEURALGIA
     Route: 061
  3. ZANTAC [Concomitant]
     Active Substance: RANITIDINE HYDROCHLORIDE
  4. BIOTIN [Concomitant]
     Active Substance: BIOTIN
  5. ELECTROLYTIC DRINKS [Concomitant]
  6. PROTONIX [Concomitant]
     Active Substance: PANTOPRAZOLE SODIUM
  7. BUPROPION. [Concomitant]
     Active Substance: BUPROPION

REACTIONS (7)
  - Ageusia [None]
  - Oral mucosal blistering [None]
  - Mouth swelling [None]
  - Gingival bleeding [None]
  - Dry mouth [None]
  - Oral pain [None]
  - Sensory loss [None]
